FAERS Safety Report 15116504 (Version 1)
Quarter: 2018Q2

REPORT INFORMATION
  Report Type: Spontaneous
  Country: US (occurrence: US)
  Receive Date: 20180612
  Receipt Date: 20180612
  Transmission Date: 20180711
  Serious: Yes (Hospitalization)
  Sender: FDA-Public Use
  Company Number: None

PATIENT
  Sex: Male

DRUGS (16)
  1. PROAIR HFA [Concomitant]
     Active Substance: ALBUTEROL SULFATE
  2. PREDNISONE. [Concomitant]
     Active Substance: PREDNISONE
  3. DOXYCYCLINE. [Concomitant]
     Active Substance: DOXYCYCLINE
  4. AZITHROMYCIN ANHYDROUS. [Concomitant]
     Active Substance: AZITHROMYCIN ANHYDROUS
  5. IMATINIB [Suspect]
     Active Substance: IMATINIB
     Indication: CHRONIC MYELOMONOCYTIC LEUKAEMIA
     Route: 048
     Dates: start: 20170304
  6. CLOPIDOGREL [Concomitant]
     Active Substance: CLOPIDOGREL BISULFATE
  7. METOPROLOL. [Concomitant]
     Active Substance: METOPROLOL
  8. LEVOTHYROXINE. [Concomitant]
     Active Substance: LEVOTHYROXINE
  9. D [Concomitant]
  10. LISINOPRIL. [Concomitant]
     Active Substance: LISINOPRIL
  11. OFLOXACIN. [Concomitant]
     Active Substance: OFLOXACIN
  12. SIMVASTATIN. [Concomitant]
     Active Substance: SIMVASTATIN
  13. FLUTICASONE. [Concomitant]
     Active Substance: FLUTICASONE
  14. DUREZOL [Concomitant]
     Active Substance: DIFLUPREDNATE
  15. ASA [Concomitant]
     Active Substance: ASPIRIN
  16. BROMSITE [Concomitant]
     Active Substance: BROMFENAC SODIUM

REACTIONS (3)
  - Cough [None]
  - Angina pectoris [None]
  - Chest pain [None]
